FAERS Safety Report 6612879-3 (Version None)
Quarter: 2010Q1

REPORT INFORMATION
  Report Type: 
  Country: None (occurrence: None)
  Receive Date: 20100303
  Receipt Date: 20100301
  Transmission Date: 20100710
  Serious: Yes (Hospitalization)
  Sender: FDA-Public Use
  Company Number: SE-AMGEN-UK243415

PATIENT
  Sex: Male

DRUGS (7)
  1. ARANESP [Suspect]
     Indication: RENAL FAILURE CHRONIC
     Route: 058
     Dates: start: 20060816, end: 20070901
  2. NORVASC [Concomitant]
  3. ENALAPRIL MALEATE [Concomitant]
  4. FURIX [Concomitant]
  5. ROCALTROL [Concomitant]
  6. SODIUM BICARBONATE [Concomitant]
  7. WARAN [Concomitant]

REACTIONS (5)
  - ANAEMIA [None]
  - APLASIA PURE RED CELL [None]
  - DRUG SPECIFIC ANTIBODY PRESENT [None]
  - NON-NEUTRALISING ANTIBODIES POSITIVE [None]
  - RENAL FUNCTION TEST ABNORMAL [None]
